FAERS Safety Report 21768065 (Version 2)
Quarter: 2022Q4

REPORT INFORMATION
  Report Type: Spontaneous
  Country: CH (occurrence: CH)
  Receive Date: 20221222
  Receipt Date: 20221229
  Transmission Date: 20230113
  Serious: Yes (Other)
  Sender: FDA-Public Use
  Company Number: CH-AMERICAN REGENT INC-20181156

PATIENT
  Sex: Female

DRUGS (13)
  1. FERINJECT [Suspect]
     Active Substance: FERRIC CARBOXYMALTOSE
     Indication: Iron deficiency
     Dosage: UNK
     Route: 064
     Dates: start: 20180110, end: 20180119
  2. CORGARD [Suspect]
     Active Substance: NADOLOL
     Indication: Cardiac hypertrophy
     Dosage: 80 MG,1 IN 12 HR
     Route: 064
     Dates: start: 20170812
  3. CORGARD [Suspect]
     Active Substance: NADOLOL
     Dosage: 200 MILLIGRAM
     Route: 064
     Dates: start: 201708, end: 20180205
  4. CORGARD [Suspect]
     Active Substance: NADOLOL
     Dosage: 200 MG,1 IN 1 D
     Route: 064
     Dates: start: 20180206, end: 20180227
  5. EUTHYROX [Suspect]
     Active Substance: LEVOTHYROXINE SODIUM
     Indication: Autoimmune thyroiditis
     Dosage: 100 MICROGRAM, QD
     Route: 064
     Dates: start: 2017
  6. EUTHYROX [Suspect]
     Active Substance: LEVOTHYROXINE SODIUM
     Dosage: 0.12 MILLIGRAM, QD
     Route: 064
     Dates: start: 2017, end: 201711
  7. EUTHYROX [Suspect]
     Active Substance: LEVOTHYROXINE SODIUM
     Dosage: 125 MCG, 1 IN 1 D
     Route: 064
     Dates: start: 201711
  8. EUTHYROX [Suspect]
     Active Substance: LEVOTHYROXINE SODIUM
     Dosage: 0.13 MILLIGRAM, QD
     Route: 064
     Dates: start: 201711, end: 20180227
  9. NEXIUM [Suspect]
     Active Substance: ESOMEPRAZOLE MAGNESIUM
     Indication: Product used for unknown indication
     Dosage: EVERY 1 DAY (1 IN 1 D)
     Route: 064
     Dates: end: 20180206
  10. ISONIAZID [Suspect]
     Active Substance: ISONIAZID
     Indication: Pulmonary tuberculosis
     Dosage: 300 MG, 1 IN 1 D
     Route: 064
     Dates: start: 20171130, end: 20180206
  11. URSODIOL [Suspect]
     Active Substance: URSODIOL
     Indication: Cholestasis of pregnancy
     Dosage: UNKNOWN
     Route: 064
     Dates: start: 201802, end: 20180227
  12. NOVORAPID [Suspect]
     Active Substance: INSULIN ASPART
     Indication: Gestational diabetes
     Dosage: 12 IU, 1 IN 1 D
     Route: 064
     Dates: start: 20180222, end: 20180227
  13. INSULIN HUMAN [Suspect]
     Active Substance: INSULIN HUMAN
     Indication: Gestational diabetes
     Dosage: 6 IU, IN THE EVENING
     Route: 064
     Dates: start: 20180215, end: 20180227

REACTIONS (7)
  - Neonatal respiratory distress syndrome [Recovered/Resolved]
  - Intraventricular haemorrhage neonatal [Unknown]
  - Premature baby [Recovered/Resolved]
  - Bradypnoea [Recovered/Resolved]
  - Jaundice [Unknown]
  - Foetal exposure during pregnancy [Recovered/Resolved]
  - Low birth weight baby [Unknown]

NARRATIVE: CASE EVENT DATE: 20180110
